FAERS Safety Report 4407151-6 (Version None)
Quarter: 2004Q3

REPORT INFORMATION
  Report Type: 
  Country: None (occurrence: None)
  Receive Date: 20040723
  Receipt Date: 20040723
  Transmission Date: 20050211
  Serious: Yes (Other)
  Sender: FDA-Public Use
  Company Number: None

PATIENT
  Age: 78 Year
  Sex: Male
  Weight: 88.5 kg

DRUGS (19)
  1. GATIFLOXACIN [Suspect]
  2. IRRIGATION KIT W/PISTON SYR [Concomitant]
  3. CATHETER, FOLEY SILICONE [Concomitant]
  4. FOLEY CATHETERIZATION TRAY W/O CATHETER [Concomitant]
  5. CARBIDOPA [Concomitant]
  6. BAGL, LEG CONVEEN [Concomitant]
  7. BAG, URINE, BEDSIDE [Concomitant]
  8. WATER FOR IRRIGATION, STERILE [Concomitant]
  9. ENTACAPONE [Concomitant]
  10. CODEINE/ACETAMINOPHEN [Concomitant]
  11. GATIFLOXACIN [Concomitant]
  12. FINASTERIDE [Concomitant]
  13. PENTOXIFYLLINE [Concomitant]
  14. GLYBURIDE [Concomitant]
  15. MELOXICAM [Concomitant]
  16. OMEPRAZOLE [Concomitant]
  17. SERTRALINE HCL [Concomitant]
  18. SIMVASTATIN [Concomitant]
  19. CASTOR OIL/PERUVIAN BALSAM/TRIPSYN [Concomitant]

REACTIONS (2)
  - PRURITUS [None]
  - RASH [None]
